FAERS Safety Report 8608895 (Version 6)
Quarter: 2013Q4

REPORT INFORMATION
  Report Type: Report from Study
  Country: US (occurrence: US)
  Receive Date: 20120611
  Receipt Date: 20131008
  Transmission Date: 20140711
  Serious: Yes (Hospitalization)
  Sender: FDA-Public Use
  Company Number: US-ACTELION-A-NJ2007-14264

PATIENT
  Age: 47 Year
  Sex: Female

DRUGS (18)
  1. TRACLEER [Suspect]
     Indication: PULMONARY ARTERIAL HYPERTENSION
     Dosage: 62.5 MG, BID
     Route: 048
     Dates: start: 20070104, end: 20070203
  2. TRACLEER [Suspect]
     Dosage: 125 MG, BID
     Route: 048
     Dates: start: 20070204, end: 20070213
  3. TRACLEER [Suspect]
     Dosage: 62.5 MG, BID
     Route: 048
     Dates: start: 20070217
  4. VIREAD [Concomitant]
     Dosage: 300 MG, QD
  5. EPIVIR [Concomitant]
     Dosage: 150 MG, BID
  6. ZIAGEN [Concomitant]
     Dosage: 400 MG, BID
  7. LASIX [Concomitant]
  8. LEXAPRO [Concomitant]
  9. VALIUM [Concomitant]
  10. OXYCONTIN [Concomitant]
  11. PREVACID [Concomitant]
  12. NEURONTIN [Concomitant]
     Dosage: 400 MG, TID
  13. ESZOPICLONE [Concomitant]
  14. ALBUTEROL [Concomitant]
     Dosage: 1-2 PUFF, UNK
  15. ASPIRIN [Concomitant]
     Dosage: 81 MG, QD
  16. MORPHINE [Concomitant]
     Dosage: 15 MG, QD
  17. MORPHINE [Concomitant]
     Dosage: 30 MG, QID
  18. GABAPENTIN [Suspect]
     Dosage: 400 MG, TID

REACTIONS (16)
  - Chronic obstructive pulmonary disease [Unknown]
  - Myocardial infarction [Unknown]
  - Pneumonia [Recovered/Resolved]
  - Migraine [Unknown]
  - Visual impairment [Unknown]
  - Dry skin [Unknown]
  - Pericardial effusion [Recovered/Resolved]
  - Weight decreased [Unknown]
  - Hypotension [Recovered/Resolved]
  - Dizziness [Recovered/Resolved]
  - Swelling [Recovered/Resolved]
  - Oedema peripheral [Recovered/Resolved]
  - Adverse drug reaction [Unknown]
  - Heart rate increased [Unknown]
  - Oxygen saturation decreased [Unknown]
  - Syncope [Recovered/Resolved]
